FAERS Safety Report 9249405 (Version 1)
Quarter: 2013Q2

REPORT INFORMATION
  Report Type: Spontaneous
  Country: US (occurrence: US)
  Receive Date: 20130423
  Receipt Date: 20130423
  Transmission Date: 20140414
  Serious: No
  Sender: FDA-Public Use
  Company Number: US-PFIZER INC-2013125321

PATIENT
  Age: 67 Year
  Sex: Female
  Weight: 74.38 kg

DRUGS (4)
  1. TIKOSYN [Suspect]
     Indication: ARRHYTHMIA
     Dosage: 375 UG (3 CAPSULES OF 125MCG), 2X/DAY
     Route: 048
     Dates: start: 201112
  2. POTASSIUM [Concomitant]
     Dosage: UNK
  3. MAGNESIUM [Concomitant]
     Dosage: UNK
  4. DILTIAZEM [Concomitant]
     Dosage: 240 MG, 2X/DAY

REACTIONS (2)
  - Abdominal pain upper [Unknown]
  - Constipation [Unknown]
